FAERS Safety Report 9460869 (Version 2)
Quarter: 2013Q4

REPORT INFORMATION
  Report Type: Spontaneous
  Country: JP (occurrence: JP)
  Receive Date: 20130816
  Receipt Date: 20131007
  Transmission Date: 20140711
  Serious: Yes (Death, Hospitalization)
  Sender: FDA-Public Use
  Company Number: JP-AMGEN-JPNSP2013057011

PATIENT
  Age: 65 Year
  Sex: Female
  Weight: 63.99 kg

DRUGS (21)
  1. ENBREL [Suspect]
     Indication: RHEUMATOID ARTHRITIS
     Dosage: 25 MG, WEEKLY
     Route: 058
     Dates: start: 20120917, end: 20130128
  2. ENBREL [Suspect]
     Dosage: 50 MG, WEEKLY
     Route: 058
     Dates: start: 20130204, end: 20130729
  3. NESP [Concomitant]
     Indication: ANAEMIA
     Dosage: 60 UG, WEEKLY
     Route: 042
  4. HUMALOG [Concomitant]
     Indication: DIABETES MELLITUS
     Dosage: 8 IU, QD
     Route: 058
  5. GASMOTIN [Concomitant]
     Dosage: 5 MG, 2X/DAY
     Route: 048
  6. TAKEPRON [Concomitant]
     Dosage: 15 MG, 1X/DAY, ORODISPERSIBLE TABLET
     Route: 048
  7. AROFUTO [Concomitant]
     Dosage: 20 MG, 1X/DAY
     Route: 048
  8. EPADEL                             /01682401/ [Concomitant]
     Dosage: 300 MG, 3X/DAY
     Route: 048
  9. LIVALO [Concomitant]
     Dosage: 1 MG, 1X/DAY
     Route: 048
  10. POLAPREZINC [Concomitant]
     Dosage: 75 MG, 2X/DAY
     Route: 048
  11. BAYASPIRIN [Concomitant]
     Dosage: 100 MG, 1X/DAY
     Route: 048
  12. ZYRTEK [Concomitant]
     Dosage: 10 MG, 1X/DAY
     Route: 048
  13. GLUFAST [Concomitant]
     Dosage: 10 MG, 1X/DAY
     Route: 048
  14. NIFEDIPINE [Concomitant]
     Dosage: 10 MG, 2X/DAY
     Route: 048
  15. AVAPRO [Concomitant]
     Dosage: 100 MG, 1X/DAY
     Route: 048
  16. CALTAN [Concomitant]
     Dosage: 1000MG AT MORNING, 1500MG AT NOON AND EVENING RESPECTIVELY
     Route: 048
  17. POLYFUL [Concomitant]
     Dosage: 500 MG, 3X/DAY
     Route: 048
  18. RENAGEL                            /01459901/ [Concomitant]
     Dosage: 750 MG, 3X/DAY
     Route: 048
  19. ISCOTIN                            /00030201/ [Concomitant]
     Dosage: 200 MG, AFTER DIALYSIS
     Route: 048
  20. PYDOXAL [Concomitant]
     Dosage: 10 MG, AFTER DIALYSIS
     Route: 048
  21. PREDNISOLONE [Concomitant]
     Dosage: 5 MG, 1X/DAY
     Route: 048

REACTIONS (2)
  - Malaise [Unknown]
  - Sepsis [Fatal]
